FAERS Safety Report 6463395-3 (Version None)
Quarter: 2009Q4

REPORT INFORMATION
  Report Type: 
  Country: None (occurrence: None)
  Receive Date: 20091201
  Receipt Date: 20090826
  Transmission Date: 20100525
  Serious: Yes (Hospitalization)
  Sender: FDA-Public Use
  Company Number: US-AMGEN-QUU361884

PATIENT
  Sex: Female

DRUGS (1)
  1. ENBREL [Suspect]
     Indication: RHEUMATOID ARTHRITIS
     Route: 058
     Dates: start: 20070104

REACTIONS (5)
  - ARTHRALGIA [None]
  - COUGH [None]
  - FURUNCLE [None]
  - RHEUMATOID ARTHRITIS [None]
  - VOMITING [None]
